FAERS Safety Report 7969522-0 (Version None)
Quarter: 2011Q4

REPORT INFORMATION
  Report Type: 
  Country: None (occurrence: None)
  Receive Date: 20111212
  Receipt Date: 20111206
  Transmission Date: 20120403
  Serious: No
  Sender: FDA-Public Use
  Company Number: US-PFIZER INC-2011298835

PATIENT
  Sex: Female

DRUGS (9)
  1. VITAMIN B COMPLEX CAP [Suspect]
     Dosage: UNK
  2. ASPIRIN [Suspect]
     Dosage: 81 MG, 2X/DAY
  3. PLAVIX [Suspect]
     Dosage: UNK
  4. VITAMIN D [Suspect]
     Dosage: UNK
  5. PEPCID [Suspect]
     Dosage: 40 MG, 2X/DAY
  6. POTASSIUM CHLORIDE [Suspect]
     Dosage: UNK
  7. SYNTHROID [Suspect]
     Dosage: UNK
  8. ZOCOR [Suspect]
     Dosage: UNK
  9. DETROL [Suspect]
     Dosage: UNK

REACTIONS (3)
  - FALL [None]
  - BLOOD COUNT ABNORMAL [None]
  - DYSPNOEA [None]
